FAERS Safety Report 8813934 (Version 1)
Quarter: 2012Q4

REPORT INFORMATION
  Report Type: 
  Country: US (occurrence: US)
  Receive Date: 20120928
  Receipt Date: 20120928
  Transmission Date: 20130627
  Serious: Yes (Other)
  Sender: FDA-Public Use
  Company Number: US-ROCHE-1123336

PATIENT
  Sex: Female

DRUGS (6)
  1. HERCEPTIN [Suspect]
     Indication: BREAST CANCER METASTATIC
     Route: 065
     Dates: start: 200410, end: 200501
  2. HERCEPTIN [Suspect]
     Route: 065
     Dates: start: 200606, end: 200608
  3. HERCEPTIN [Suspect]
     Route: 065
     Dates: start: 20080819
  4. HERCEPTIN [Suspect]
     Route: 065
     Dates: start: 200506, end: 200510
  5. XELODA [Suspect]
     Indication: BREAST CANCER METASTATIC
     Route: 065
     Dates: start: 2006, end: 200702
  6. XELODA [Suspect]
     Route: 065
     Dates: start: 200705, end: 200708

REACTIONS (1)
  - Disease progression [Recovering/Resolving]
